FAERS Safety Report 5546859-6 (Version None)
Quarter: 2007Q4

REPORT INFORMATION
  Report Type: 
  Country: None (occurrence: None)
  Receive Date: 20071206
  Receipt Date: 20071119
  Transmission Date: 20080405
  Serious: Yes (Other)
  Sender: FDA-Public Use
  Company Number: 2007S1012071

PATIENT
  Age: 70 Year
  Sex: Female

DRUGS (4)
  1. RANITIDINE [Suspect]
     Indication: GASTRIC ULCER
     Dosage: 300 MG;ORAL;DAILY
     Route: 048
     Dates: start: 20071108, end: 20071110
  2. ASPIRIN /0002701/ (ACETYLSALICYLIC ACID) [Concomitant]
  3. LIPITOR [Concomitant]
  4. OMEPRAZOLE [Concomitant]

REACTIONS (3)
  - ARTHRALGIA [None]
  - HEADACHE [None]
  - SWELLING FACE [None]
